FAERS Safety Report 17741354 (Version 1)
Quarter: 2020Q2

REPORT INFORMATION
  Report Type: Spontaneous
  Country: TR (occurrence: TR)
  Receive Date: 20200504
  Receipt Date: 20200504
  Transmission Date: 20200714
  Serious: Yes (Hospitalization, Other)
  Sender: FDA-Public Use
  Company Number: TR-ACELLA PHARMACEUTICALS, LLC-2083464

PATIENT
  Age: 82 Year
  Sex: Female

DRUGS (1)
  1. PHENYTOIN SODIUM. [Suspect]
     Active Substance: PHENYTOIN SODIUM
     Indication: EPILEPSY
     Route: 065

REACTIONS (3)
  - Osteomalacia [Unknown]
  - Femur fracture [Unknown]
  - Hypocalcaemia [Unknown]
